FAERS Safety Report 9961625 (Version 1)
Quarter: 2014Q1

REPORT INFORMATION
  Report Type: Report from Study
  Country: US (occurrence: US)
  Receive Date: 20140305
  Receipt Date: 20140305
  Transmission Date: 20141002
  Serious: Yes (Hospitalization)
  Sender: FDA-Public Use
  Company Number: US-ABBVIE-13P-163-1112780-00

PATIENT
  Age: 29 Year
  Sex: Female
  Weight: 80.81 kg

DRUGS (3)
  1. HUMIRA [Suspect]
     Indication: COLITIS ULCERATIVE
     Dosage: ONCE
     Dates: start: 20130123, end: 20130123
  2. HUMIRA [Suspect]
     Indication: COLITIS ULCERATIVE
     Dosage: ONCE
     Dates: start: 20130206, end: 20130206
  3. HUMIRA [Suspect]
     Dosage: ONCE
     Dates: start: 20130220, end: 20130220

REACTIONS (2)
  - Rectal haemorrhage [Recovered/Resolved]
  - Colitis ulcerative [Recovered/Resolved]
